FAERS Safety Report 17021008 (Version 1)
Quarter: 2019Q4

REPORT INFORMATION
  Report Type: Spontaneous
  Country: US (occurrence: US)
  Receive Date: 20191112
  Receipt Date: 20191112
  Transmission Date: 20200122
  Serious: No
  Sender: FDA-Public Use
  Company Number: US-ALLERGAN-1911353US

PATIENT
  Weight: 63.95 kg

DRUGS (1)
  1. POLYMYXIN B SULFATE AND TRIMETHOPRIM SULFATE [Suspect]
     Active Substance: POLYMYXIN B SULFATE\TRIMETHOPRIM SULFATE
     Indication: PRODUCT USED FOR UNKNOWN INDICATION
     Dosage: 100 MG
     Route: 047

REACTIONS (4)
  - Sleep disorder [Unknown]
  - Gastrointestinal disorder [Unknown]
  - Chills [Unknown]
  - Drug hypersensitivity [Unknown]
